FAERS Safety Report 4361318-4 (Version None)
Quarter: 2004Q2

REPORT INFORMATION
  Report Type: 
  Country: None (occurrence: None)
  Receive Date: 20040520
  Receipt Date: 20040318
  Transmission Date: 20050107
  Serious: Yes (Other)
  Sender: FDA-Public Use
  Company Number: US-MERCK-0403USA01625

PATIENT
  Age: 48 Year
  Sex: Female
  Weight: 55 kg

DRUGS (7)
  1. FIORICET TABLETS [Concomitant]
     Route: 065
  2. VENTOLIN [Concomitant]
     Indication: ASTHMA
     Route: 055
     Dates: end: 20010712
  3. RHINOCORT [Concomitant]
     Indication: POLYP
     Route: 055
     Dates: end: 20010712
  4. ZYRTEC [Concomitant]
     Indication: RHINITIS ALLERGIC
     Route: 048
     Dates: end: 20010712
  5. ADVAIR DISKUS 100/50 [Concomitant]
     Indication: ASTHMA
     Route: 055
     Dates: start: 20010712
  6. SINGULAIR [Suspect]
     Indication: ASTHMA
     Route: 048
     Dates: start: 20000101, end: 20010101
  7. SINGULAIR [Suspect]
     Route: 048
     Dates: start: 20010712

REACTIONS (3)
  - BLOOD CHOLESTEROL INCREASED [None]
  - PRESCRIBED OVERDOSE [None]
  - SINUS POLYP [None]
